FAERS Safety Report 12583825 (Version 1)
Quarter: 2016Q3

REPORT INFORMATION
  Report Type: Other
  Country: US (occurrence: US)
  Receive Date: 20160722
  Receipt Date: 20160722
  Transmission Date: 20161109
  Serious: Yes (Hospitalization)
  Sender: FDA-Public Use
  Company Number: US-WARNER CHILCOTT, LLC-1055418

PATIENT
  Sex: Female

DRUGS (12)
  1. ACTONEL [Suspect]
     Active Substance: RISEDRONATE SODIUM
     Indication: OSTEOPOROSIS POSTMENOPAUSAL
     Route: 048
     Dates: start: 200111, end: 20060417
  2. VITAMIN D [Concomitant]
     Active Substance: CHOLECALCIFEROL
  3. ACULAR [Concomitant]
     Active Substance: KETOROLAC TROMETHAMINE
  4. FOSAMAX [Suspect]
     Active Substance: ALENDRONATE SODIUM
     Route: 048
     Dates: start: 19970730, end: 200111
  5. CALCIUM [Concomitant]
     Active Substance: CALCIUM
  6. LOPRESSOR [Concomitant]
     Active Substance: METOPROLOL TARTRATE
  7. TRANXENE T-TAB [Concomitant]
     Active Substance: CLORAZEPATE DIPOTASSIUM
  8. ASPIRIN. [Concomitant]
     Active Substance: ASPIRIN
  9. HYDROCORTISONE. [Concomitant]
     Active Substance: HYDROCORTISONE
  10. TOFRANIL [Concomitant]
     Active Substance: IMIPRAMINE HYDROCHLORIDE
  11. MAXZIDE [Concomitant]
     Active Substance: HYDROCHLOROTHIAZIDE\TRIAMTERENE
  12. ZYRTEC [Concomitant]
     Active Substance: CETIRIZINE HYDROCHLORIDE

REACTIONS (19)
  - Device related infection [Unknown]
  - Gingivitis [Unknown]
  - Impaired healing [Unknown]
  - Bone loss [Unknown]
  - Tooth abscess [Unknown]
  - Gingival bleeding [Unknown]
  - Gingival pain [Unknown]
  - Pathological fracture [Unknown]
  - Osteonecrosis of jaw [Unknown]
  - Tooth loss [Unknown]
  - Jaw fracture [Unknown]
  - Dental fistula [Unknown]
  - Device failure [Unknown]
  - Fascial infection [Unknown]
  - Malocclusion [Unknown]
  - Gingival swelling [Unknown]
  - Postoperative wound infection [Unknown]
  - Osteomyelitis [Unknown]
  - Implant site inflammation [Unknown]

NARRATIVE: CASE EVENT DATE: 20031105
